FAERS Safety Report 13177499 (Version 1)
Quarter: 2017Q1

REPORT INFORMATION
  Report Type: Report from Study
  Country: US (occurrence: US)
  Receive Date: 20170201
  Receipt Date: 20170201
  Transmission Date: 20170428
  Serious: No
  Sender: FDA-Public Use
  Company Number: US-EXELIXIS-CABO-16006396

PATIENT
  Sex: Male

DRUGS (13)
  1. MORPHINE [Concomitant]
     Active Substance: MORPHINE
  2. SENOKOT [Concomitant]
     Active Substance: SENNOSIDES
  3. ATORVASTATIN [Concomitant]
     Active Substance: ATORVASTATIN
  4. XGEVA [Concomitant]
     Active Substance: DENOSUMAB
  5. COMETRIQ [Suspect]
     Active Substance: CABOZANTINIB S-MALATE
     Indication: RENAL CANCER
     Dosage: 60 MG, QD
     Route: 048
     Dates: start: 20160409
  6. KEPPRA [Concomitant]
     Active Substance: LEVETIRACETAM
  7. PROTONIX [Concomitant]
     Active Substance: PANTOPRAZOLE SODIUM
  8. ZOLOFT [Concomitant]
     Active Substance: SERTRALINE HYDROCHLORIDE
  9. NAPROXEN. [Concomitant]
     Active Substance: NAPROXEN
  10. CHOLECALCIFEROL [Concomitant]
     Active Substance: CHOLECALCIFEROL
  11. REGLAN [Concomitant]
     Active Substance: METOCLOPRAMIDE HYDROCHLORIDE
  12. ZOFRAN [Concomitant]
     Active Substance: ONDANSETRON HYDROCHLORIDE
  13. MIRALAX [Concomitant]
     Active Substance: POLYETHYLENE GLYCOL 3350

REACTIONS (7)
  - Dry skin [Unknown]
  - Diarrhoea [Not Recovered/Not Resolved]
  - Off label use [Unknown]
  - Skin exfoliation [Unknown]
  - Memory impairment [Unknown]
  - Fatigue [Unknown]
  - Erythema [Unknown]
